FAERS Safety Report 4700249-4 (Version None)
Quarter: 2005Q2

REPORT INFORMATION
  Report Type: 
  Country: None (occurrence: None)
  Receive Date: 20050624
  Receipt Date: 20050624
  Transmission Date: 20051028
  Serious: Yes (Hospitalization)
  Sender: FDA-Public Use
  Company Number: None

PATIENT
  Sex: Female
  Weight: 73.9363 kg

DRUGS (9)
  1. VIOXX [Suspect]
     Indication: BACK PAIN
     Dosage: 1 TABLET BY MOUTH DAILY
     Route: 048
     Dates: start: 20000303, end: 20040101
  2. VIOXX [Suspect]
     Indication: INTERVERTEBRAL DISC DEGENERATION
     Dosage: 1 TABLET BY MOUTH DAILY
     Route: 048
     Dates: start: 20000303, end: 20040101
  3. VIOXX [Suspect]
     Indication: SPINAL DISORDER
     Dosage: 1 TABLET BY MOUTH DAILY
     Route: 048
     Dates: start: 20000303, end: 20040101
  4. HUMULIN N [Concomitant]
  5. ATENOLOL [Concomitant]
  6. ZYPREXA [Concomitant]
  7. DIAZEPAM [Concomitant]
  8. PROZAC [Concomitant]
  9. LORTAB [Concomitant]

REACTIONS (3)
  - ACTIVITIES OF DAILY LIVING IMPAIRED [None]
  - MYOCARDIAL INFARCTION [None]
  - WEIGHT DECREASED [None]
